FAERS Safety Report 14775247 (Version 5)
Quarter: 2018Q3

REPORT INFORMATION
  Report Type: Spontaneous
  Country: US (occurrence: US)
  Receive Date: 20180418
  Receipt Date: 20180702
  Transmission Date: 20181010
  Serious: Yes (Other)
  Sender: FDA-Public Use
  Company Number: US-PFIZER INC-2018154480

PATIENT
  Age: 75 Year
  Sex: Female

DRUGS (4)
  1. CULTURELLE [Concomitant]
     Active Substance: LACTOBACILLUS RHAMNOSUS
     Dosage: UNK
  2. KEFLEX [Concomitant]
     Active Substance: CEPHALEXIN
     Dosage: 500 MG, UNK
  3. LYRICA [Suspect]
     Active Substance: PREGABALIN
     Indication: FIBROMYALGIA
     Dosage: 25 MG, 2X/DAY
     Dates: start: 20180408
  4. BONIVA [Concomitant]
     Active Substance: IBANDRONATE SODIUM
     Dosage: UNK

REACTIONS (8)
  - Intentional product misuse [Unknown]
  - Escherichia infection [Unknown]
  - Loss of personal independence in daily activities [Unknown]
  - Confusional state [Recovering/Resolving]
  - Fall [Unknown]
  - Nasal injury [Unknown]
  - Insomnia [Unknown]
  - Drug effect incomplete [Unknown]

NARRATIVE: CASE EVENT DATE: 201804
